FAERS Safety Report 4625394-3 (Version None)
Quarter: 2005Q2

REPORT INFORMATION
  Report Type: 
  Country: None (occurrence: None)
  Receive Date: 20050401
  Receipt Date: 20050329
  Transmission Date: 20051028
  Serious: Yes (Other)
  Sender: FDA-Public Use
  Company Number: US-JNJFOC-20050206406

PATIENT
  Sex: Female
  Weight: 54.43 kg

DRUGS (12)
  1. ULTRAM [Suspect]
     Dosage: PRESCRIBED 1-2 QID AS NEEDED, TOOK 1450 MG IN ONE DAY, NOW 1-2 EVERY 4-6 HOURS
     Route: 049
  2. DURAGESIC-100 [Concomitant]
  3. DURAGESIC-100 [Concomitant]
     Indication: PAIN
  4. PREVACID [Concomitant]
  5. VICODIN [Concomitant]
  6. VICODIN [Concomitant]
     Indication: PAIN
  7. MICALCIN [Concomitant]
     Indication: BONE DENSITY DECREASED
  8. ADVAIR DISKUS 100/50 [Concomitant]
  9. ADVAIR DISKUS 100/50 [Concomitant]
  10. ALBUTERAL [Concomitant]
  11. COMBIVENT [Concomitant]
  12. COMBIVENT [Concomitant]

REACTIONS (3)
  - DRUG ABUSER [None]
  - INTENTIONAL MISUSE [None]
  - SELF-MEDICATION [None]
